FAERS Safety Report 4954079-9 (Version None)
Quarter: 2006Q1

REPORT INFORMATION
  Report Type: 
  Country: None (occurrence: None)
  Receive Date: 20060327
  Receipt Date: 20060321
  Transmission Date: 20060701
  Serious: Yes (Disabling, Other)
  Sender: FDA-Public Use
  Company Number: US-GLAXOSMITHKLINE-A0598392A

PATIENT
  Age: 51 Year
  Sex: Female

DRUGS (4)
  1. LAMICTAL [Suspect]
     Indication: EPILEPSY
     Route: 048
     Dates: start: 20051201, end: 20060201
  2. TOPAMAX [Concomitant]
  3. KLONOPIN [Concomitant]
  4. ANDRODERM [Concomitant]

REACTIONS (1)
  - WEIGHT INCREASED [None]
